APPROVED DRUG PRODUCT: DOXYLAMINE SUCCINATE
Active Ingredient: DOXYLAMINE SUCCINATE
Strength: 25MG
Dosage Form/Route: TABLET;ORAL
Application: A088603 | Product #001
Applicant: QUANTUM PHARMICS LTD
Approved: Aug 7, 1984 | RLD: No | RS: No | Type: DISCN